FAERS Safety Report 16534083 (Version 1)
Quarter: 2019Q3

REPORT INFORMATION
  Report Type: Spontaneous
  Country: US (occurrence: US)
  Receive Date: 20190703
  Receipt Date: 20190703
  Transmission Date: 20191004
  Serious: Yes (Other)
  Sender: FDA-Public Use
  Company Number: None

PATIENT
  Age: 42 Year
  Sex: Female
  Weight: 117 kg

DRUGS (2)
  1. BACITRACIN OPHTHALMIC OINTMENT USP [Suspect]
     Active Substance: BACITRACIN
     Indication: CORNEAL PERFORATION
     Dosage: ?          QUANTITY:3.5 3.5 GRAM TUBE;OTHER ROUTE:APPLY SMALL RIBBON TO RIGHT EYE?
     Dates: start: 20190125, end: 20190201
  2. IBUPROFEN. [Concomitant]
     Active Substance: IBUPROFEN

REACTIONS (1)
  - Eye infection [None]

NARRATIVE: CASE EVENT DATE: 20190126
